FAERS Safety Report 6293724-5 (Version None)
Quarter: 2009Q3

REPORT INFORMATION
  Report Type: 
  Country: None (occurrence: None)
  Receive Date: 20090803
  Receipt Date: 20090729
  Transmission Date: 20100115
  Serious: Yes (Hospitalization, Other)
  Sender: FDA-Public Use
  Company Number: US-BAYER-200928183NA

PATIENT
  Sex: Female

DRUGS (1)
  1. MIRENA [Suspect]
     Indication: CONTRACEPTION
     Dosage: CONTINUOUS
     Route: 015
     Dates: start: 20081001, end: 20090724

REACTIONS (4)
  - ABDOMINAL PAIN [None]
  - IUCD COMPLICATION [None]
  - UTERINE RUPTURE [None]
  - VAGINAL HAEMORRHAGE [None]
